FAERS Safety Report 4458252-8 (Version None)
Quarter: 2004Q3

REPORT INFORMATION
  Report Type: 
  Country: None (occurrence: None)
  Receive Date: 20040917
  Receipt Date: 20040330
  Transmission Date: 20050211
  Serious: Yes (Other)
  Sender: FDA-Public Use
  Company Number: US-JNJFOC-20040300166

PATIENT
  Age: 8 Year
  Sex: Female
  Weight: 18.5 kg

DRUGS (2)
  1. TOPAMAX [Suspect]
     Indication: CONVULSION
     Dosage: 75 MG, IN 1 DAY
     Dates: start: 20040912, end: 20040301
  2. BACLOFEN (BALCOFEN) TABLETS [Concomitant]

REACTIONS (5)
  - ACIDOSIS [None]
  - BREATH HOLDING [None]
  - DYSPHAGIA [None]
  - DYSPNOEA [None]
  - WEIGHT DECREASED [None]
